FAERS Safety Report 8483053-3 (Version None)
Quarter: 2012Q2

REPORT INFORMATION
  Report Type: 
  Country: None (occurrence: None)
  Receive Date: 20120625
  Receipt Date: 20120615
  Transmission Date: 20120825
  Serious: Yes (Hospitalization)
  Sender: FDA-Public Use
  Company Number: 1324095

PATIENT
  Age: 83 Year
  Sex: Male
  Weight: 54 kg

DRUGS (3)
  1. PRECEDEX [Suspect]
     Indication: SEDATION
     Dosage: 1 MCG/KG/HR, UNKNOWN, INTRAVENOUS DRIP
     Route: 041
  2. LIDOCAINE HYDROCHLORIDE/EPINEPHRINE) [Concomitant]
  3. OXYGEN [Concomitant]

REACTIONS (1)
  - GLOSSOPTOSIS [None]
